FAERS Safety Report 6919189-5 (Version None)
Quarter: 2010Q3

REPORT INFORMATION
  Report Type: 
  Country: None (occurrence: None)
  Receive Date: 20100811
  Receipt Date: 20100730
  Transmission Date: 20110219
  Serious: Yes (Life-Threatening, Hospitalization, Other)
  Sender: FDA-Public Use
  Company Number: FI-PFIZER INC-2010095712

PATIENT
  Age: 92 Year
  Sex: Female

DRUGS (8)
  1. LYRICA [Suspect]
     Dosage: 25 MG + 75 MG DAILY
     Route: 048
     Dates: start: 20100101
  2. VESICARE [Concomitant]
     Dosage: 5 MG, 1X/DAY
     Route: 048
  3. TRIPTYL [Concomitant]
     Dosage: 10 MG, 1X/DAY
     Route: 048
  4. PRIMASPAN [Concomitant]
     Dosage: 100 MG, 1X/DAY
     Route: 048
  5. LINATIL [Concomitant]
     Dosage: 5 MG, 1X/DAY
     Route: 048
  6. HYDAC [Concomitant]
     Dosage: 5 MG, 1X/DAY
     Route: 048
  7. TRAMAL [Concomitant]
     Dosage: 100 MG, 2X/DAY
  8. FURESIS [Concomitant]
     Dosage: 20MG, UNK
     Route: 048

REACTIONS (5)
  - GENERAL PHYSICAL HEALTH DETERIORATION [None]
  - HAEMOLYSIS [None]
  - NEUTROPENIA [None]
  - PNEUMONIA [None]
  - PYREXIA [None]
